FAERS Safety Report 14681501 (Version 1)
Quarter: 2018Q1

REPORT INFORMATION
  Report Type: Spontaneous
  Country: FR (occurrence: FR)
  Receive Date: 20180326
  Receipt Date: 20180326
  Transmission Date: 20180509
  Serious: Yes (Hospitalization)
  Sender: FDA-Public Use
  Company Number: FR-TEVA-2018-FR-872105

PATIENT
  Age: 47 Year
  Sex: Male

DRUGS (3)
  1. ANTILYMPHOCYTE ANTIBODY PREPARATION [Suspect]
     Active Substance: THYMOCYTE IMMUNE GLOBULIN NOS
     Route: 065
     Dates: start: 2016
  2. MYCOPHENOLATE MOFETIL. [Suspect]
     Active Substance: MYCOPHENOLATE MOFETIL
     Route: 065
     Dates: start: 2016
  3. TACROLIMUS. [Suspect]
     Active Substance: TACROLIMUS
     Route: 065
     Dates: start: 2016

REACTIONS (10)
  - Renal failure [None]
  - Skin lesion [Recovered/Resolved]
  - Pneumonia klebsiella [None]
  - Pathogen resistance [None]
  - Herpes zoster [Recovered/Resolved]
  - Viral mutation identified [None]
  - Sepsis [None]
  - Complications of transplanted heart [None]
  - Pneumonia [None]
  - Bronchopulmonary aspergillosis [None]

NARRATIVE: CASE EVENT DATE: 20160530
